FAERS Safety Report 9147792 (Version 1)
Quarter: 2013Q1

REPORT INFORMATION
  Report Type: Spontaneous
  Country: US (occurrence: US)
  Receive Date: 20130307
  Receipt Date: 20130307
  Transmission Date: 20140127
  Serious: Yes (Other)
  Sender: FDA-Public Use
  Company Number: US-PFIZER INC-2013079639

PATIENT
  Sex: Female

DRUGS (2)
  1. LYRICA [Suspect]
     Indication: NEUROPATHY PERIPHERAL
     Dosage: UNK
     Dates: start: 2008
  2. LYRICA [Suspect]
     Indication: PAIN IN EXTREMITY

REACTIONS (3)
  - Amnesia [Unknown]
  - Impaired work ability [Unknown]
  - Weight increased [Unknown]
